FAERS Safety Report 9391701 (Version 2)
Quarter: 2013Q3

REPORT INFORMATION
  Report Type: Report from Study
  Country: NL (occurrence: NL)
  Receive Date: 20130709
  Receipt Date: 20130828
  Transmission Date: 20140515
  Serious: Yes (Hospitalization)
  Sender: FDA-Public Use
  Company Number: NL-CELGENEUS-114-21660-13061651

PATIENT
  Age: 56 Year
  Sex: Male
  Weight: 66 kg

DRUGS (11)
  1. ABRAXANE [Suspect]
     Indication: PANCREATIC CARCINOMA
     Route: 041
     Dates: start: 20130604, end: 20130611
  2. ABRAXANE [Suspect]
     Route: 041
     Dates: start: 20130618
  3. ABRAXANE [Suspect]
     Dosage: UNKNOWN ADJUSTED DOSES
     Route: 041
     Dates: start: 20130612, end: 20130617
  4. ABRAXANE [Suspect]
     Dosage: 25% OFF
     Route: 041
     Dates: start: 20130709
  5. ABRAXANE [Suspect]
     Dosage: 50% OFF
     Route: 041
     Dates: start: 20130726, end: 20130812
  6. GEMCITABINE [Suspect]
     Indication: PANCREATIC CARCINOMA
     Route: 065
     Dates: start: 20130604, end: 20130611
  7. LANTUS [Concomitant]
     Indication: PRODUCT USED FOR UNKNOWN INDICATION
     Dosage: 12E
     Route: 065
  8. LANTUS [Concomitant]
     Route: 065
  9. TEMAZEPAM [Concomitant]
     Indication: PRODUCT USED FOR UNKNOWN INDICATION
     Route: 065
  10. PAROXETINE [Concomitant]
     Indication: PRODUCT USED FOR UNKNOWN INDICATION
     Dosage: 20 MILLIGRAM
     Route: 048
  11. ALPRAZOLAM [Concomitant]
     Indication: PRODUCT USED FOR UNKNOWN INDICATION
     Route: 065

REACTIONS (3)
  - Dizziness [Recovered/Resolved]
  - Asthenia [Recovering/Resolving]
  - Diarrhoea [Recovered/Resolved]
